FAERS Safety Report 9922097 (Version 2)
Quarter: 2014Q1

REPORT INFORMATION
  Report Type: Spontaneous
  Country: US (occurrence: US)
  Receive Date: 20140225
  Receipt Date: 20140305
  Transmission Date: 20141002
  Serious: No
  Sender: FDA-Public Use
  Company Number: US-009507513-1402USA011803

PATIENT
  Sex: Female
  Weight: 79.37 kg

DRUGS (1)
  1. OXYTROL FOR WOMEN [Suspect]
     Indication: INCONTINENCE
     Dosage: 2 DF, QW
     Route: 062
     Dates: start: 2013

REACTIONS (1)
  - Drug effect decreased [Unknown]
